FAERS Safety Report 5944442-1 (Version None)
Quarter: 2008Q4

REPORT INFORMATION
  Report Type: 
  Country: None (occurrence: None)
  Receive Date: 20081021
  Receipt Date: 20070918
  Transmission Date: 20090506
  Serious: Yes (Other)
  Sender: FDA-Public Use
  Company Number: HQWYE277324SEP07

PATIENT
  Age: 50 Year
  Sex: Female
  Weight: 49.94 kg

DRUGS (1)
  1. PREMARIN [Suspect]
     Indication: HYSTERECTOMY
     Dosage: 0.625MG DAILY, ORAL
     Route: 048
     Dates: start: 20070601, end: 20070801

REACTIONS (1)
  - DERMATITIS CONTACT [None]
